FAERS Safety Report 5033538-7 (Version None)
Quarter: 2006Q2

REPORT INFORMATION
  Report Type: 
  Country: None (occurrence: None)
  Receive Date: 20060621
  Receipt Date: 20060612
  Transmission Date: 20061013
  Serious: Yes (Death, Other)
  Sender: FDA-Public Use
  Company Number: 2006-06-0977

PATIENT
  Sex: Female

DRUGS (1)
  1. INTEGRILIN [Suspect]
     Dosage: INTRAVENOUS
     Route: 042

REACTIONS (1)
  - HAEMORRHAGE [None]
